FAERS Safety Report 4428417-X (Version None)
Quarter: 2004Q3

REPORT INFORMATION
  Report Type: 
  Country: None (occurrence: None)
  Receive Date: 20040818
  Receipt Date: 20000531
  Transmission Date: 20050211
  Serious: Yes (Life-Threatening, Hospitalization)
  Sender: FDA-Public Use
  Company Number: GB/00/00598/LEX

PATIENT
  Age: 34 Year
  Sex: Male

DRUGS (5)
  1. CLOZARIL [Suspect]
     Dosage: 12XCLOZARIL TABLETS (OVERDOSE)
     Route: 048
     Dates: start: 20040720
  2. CLOZARIL [Suspect]
     Dosage: 600MG/DAY
     Route: 048
     Dates: start: 19960215
  3. CLOZARIL [Suspect]
     Dosage: 40X100MG TABLETS
     Route: 048
     Dates: start: 20000523
  4. ANTI-PARKINSON AGENTS [Concomitant]
  5. VALPROATE SODIUM [Suspect]

REACTIONS (7)
  - CIRCULATORY COLLAPSE [None]
  - HEMIPARESIS [None]
  - LIVER FUNCTION TEST ABNORMAL [None]
  - LOSS OF CONSCIOUSNESS [None]
  - OVERDOSE [None]
  - PERONEAL NERVE PALSY [None]
  - RHABDOMYOLYSIS [None]
